FAERS Safety Report 4365315-4 (Version None)
Quarter: 2004Q2

REPORT INFORMATION
  Report Type: 
  Country: None (occurrence: None)
  Receive Date: 20040525
  Receipt Date: 20040212
  Transmission Date: 20050107
  Serious: No
  Sender: FDA-Public Use
  Company Number: PHEH2004US01892

PATIENT
  Age: 61 Year
  Sex: Female

DRUGS (6)
  1. ZELNORM [Suspect]
     Indication: IRRITABLE BOWEL SYNDROME
     Dosage: 6 MG, BID, ORAL
     Route: 048
     Dates: start: 20040130, end: 20040209
  2. PROTONIX [Concomitant]
  3. ATENOLOL [Concomitant]
  4. ZOLOFT [Concomitant]
  5. ASPIRIN [Concomitant]
  6. VALIUM [Concomitant]

REACTIONS (4)
  - BACK PAIN [None]
  - CONSTIPATION [None]
  - DYSPEPSIA [None]
  - FLATULENCE [None]
